FAERS Safety Report 10897114 (Version 2)
Quarter: 2015Q2

REPORT INFORMATION
  Report Type: Spontaneous
  Country: US (occurrence: US)
  Receive Date: 20150309
  Receipt Date: 20150410
  Transmission Date: 20150821
  Serious: No
  Sender: FDA-Public Use
  Company Number: US-PFIZER INC-2015075359

PATIENT
  Age: 55 Year
  Sex: Female
  Weight: 63 kg

DRUGS (11)
  1. OMEGA-3 FATTY ACIDS [Concomitant]
     Active Substance: OMEGA-3 FATTY ACIDS
     Dosage: 2 G, DAILY
     Route: 048
  2. CALCIUM CARBONATE W/VITAMIN D [Concomitant]
     Dosage: 1 DF, DAILY
  3. MULTIVITAMINS [Suspect]
     Active Substance: VITAMINS
     Dosage: UNK, DAILY
  4. VALIUM [Concomitant]
     Active Substance: DIAZEPAM
     Dosage: 20 MG, DAILY (1 TABLET (5 MG TOTAL) BY MOUTH EVERY 6 (SIX) HOURS AS NEEDED)
     Route: 048
  5. PAMELOR [Concomitant]
     Active Substance: NORTRIPTYLINE HYDROCHLORIDE
     Dosage: 25 MG, UNK (TAKE 1 CAPSULE BY MOUTH AT BEDTIME)
     Route: 048
  6. LEXAPRO [Concomitant]
     Active Substance: ESCITALOPRAM OXALATE
     Dosage: 10 MG, 1X/DAY
     Route: 048
  7. ASPIRIN. [Concomitant]
     Active Substance: ASPIRIN
     Dosage: 325 MG, DAILY (AS NEEDED)
     Route: 048
  8. MAGNESIUM PO [Concomitant]
     Dosage: UNK
     Route: 048
  9. RELPAX [Suspect]
     Active Substance: ELETRIPTAN HYDROBROMIDE
     Indication: MIGRAINE
     Dosage: 40 MG, UNK (Q2 DEGREE PRN )
     Route: 048
  10. LEXAPRO [Concomitant]
     Active Substance: ESCITALOPRAM OXALATE
     Dosage: 20 MG, DAILY
     Route: 048
  11. INDERAL-LA [Concomitant]
     Dosage: 80 MG, UNK (TAKE 1 CAPSULE (80 MG TOTAL) BY MOUTH DAILY)
     Route: 048

REACTIONS (11)
  - Disturbance in attention [Unknown]
  - Irritability [Unknown]
  - Somnolence [Unknown]
  - Vomiting [Unknown]
  - Nausea [Unknown]
  - Fatigue [Unknown]
  - Sleep apnoea syndrome [Unknown]
  - Headache [Unknown]
  - Insomnia [Unknown]
  - Memory impairment [Unknown]
  - Snoring [Unknown]
